FAERS Safety Report 19702246 (Version 1)
Quarter: 2021Q3

REPORT INFORMATION
  Report Type: Spontaneous
  Country: CA (occurrence: CA)
  Receive Date: 20210814
  Receipt Date: 20210814
  Transmission Date: 20211014
  Serious: Yes (Life-Threatening, Other)
  Sender: FDA-Public Use
  Company Number: CA-TEVA-2020-CA-1812851

PATIENT
  Age: 53 Year
  Sex: Male

DRUGS (7)
  1. CEFAZOLIN [Concomitant]
     Active Substance: CEFAZOLIN
     Dosage: POWDER FOR SOLUTION INTRAMUSCULAR
  2. KETAMINE HYDROCHLORIDE INJECTION USP [Concomitant]
     Active Substance: KETAMINE HYDROCHLORIDE
     Dosage: SOLUTION INTRAMUSCULAR
  3. PROPOFOL INJECTION FOR I.V. INFUSION. 200MG/20ML; 500MG/50ML+ 1000MG/1 [Suspect]
     Active Substance: PROPOFOL
     Indication: PAIN MANAGEMENT
  4. MORPHINE [Concomitant]
     Active Substance: MORPHINE
  5. PROPOFOL INJECTION FOR I.V. INFUSION. 200MG/20ML; 500MG/50ML+ 1000MG/1 [Suspect]
     Active Substance: PROPOFOL
     Indication: AGITATION
     Route: 040
  6. PROPOFOL INJECTION FOR I.V. INFUSION. 200MG/20ML; 500MG/50ML+ 1000MG/1 [Suspect]
     Active Substance: PROPOFOL
     Indication: SEDATION
     Route: 040
  7. ALCOHOL. [Concomitant]
     Active Substance: ALCOHOL

REACTIONS (1)
  - Cardiac arrest [Unknown]
